FAERS Safety Report 25479366 (Version 4)
Quarter: 2025Q3

REPORT INFORMATION
  Report Type: Spontaneous
  Country: US (occurrence: US)
  Receive Date: 20250625
  Receipt Date: 20250715
  Transmission Date: 20251020
  Serious: No
  Sender: PFIZER
  Company Number: US-PFIZER INC-202500128406

PATIENT
  Age: 65 Year
  Sex: Female

DRUGS (6)
  1. IBRANCE [Suspect]
     Active Substance: PALBOCICLIB
     Route: 048
     Dates: start: 20250515
  2. LETROZOLE [Concomitant]
     Active Substance: LETROZOLE
  3. LACOSAMIDE [Concomitant]
     Active Substance: LACOSAMIDE
  4. LEVETIRACETAM [Concomitant]
     Active Substance: LEVETIRACETAM
  5. NYSTOP [Concomitant]
     Active Substance: NYSTATIN
     Route: 061
  6. IBUPROFEN [Concomitant]
     Active Substance: IBUPROFEN

REACTIONS (3)
  - Fatigue [Not Recovered/Not Resolved]
  - Tooth loss [Not Recovered/Not Resolved]
  - Aphthous ulcer [Not Recovered/Not Resolved]

NARRATIVE: CASE EVENT DATE: 20250101
